FAERS Safety Report 25822895 (Version 2)
Quarter: 2025Q4

REPORT INFORMATION
  Report Type: Spontaneous
  Country: US (occurrence: US)
  Receive Date: 20250919
  Receipt Date: 20251118
  Transmission Date: 20260118
  Serious: No
  Sender: WES PHARMA INC
  Company Number: US-WES Pharma Inc-2184849

PATIENT
  Age: 63 Year
  Sex: Male
  Weight: 72.273 kg

DRUGS (2)
  1. ACETAMINOPHEN\CODEINE PHOSPHATE [Suspect]
     Active Substance: ACETAMINOPHEN\CODEINE PHOSPHATE
     Indication: Pain
     Dates: start: 20250717
  2. NAPROXEN SODIUM [Concomitant]
     Active Substance: NAPROXEN SODIUM

REACTIONS (1)
  - Drug ineffective [Unknown]

NARRATIVE: CASE EVENT DATE: 20250819
